FAERS Safety Report 22269026 (Version 1)
Quarter: 2023Q2

REPORT INFORMATION
  Report Type: Spontaneous
  Country: FR (occurrence: FR)
  Receive Date: 20230501
  Receipt Date: 20230501
  Transmission Date: 20230721
  Serious: Yes (Other)
  Sender: FDA-Public Use
  Company Number: None

PATIENT
  Age: 35 Year
  Sex: Female

DRUGS (17)
  1. CARBOPLATIN [Suspect]
     Active Substance: CARBOPLATIN
     Indication: Triple negative breast cancer
     Dosage: 189 MG, (1 TOTAL)
     Route: 042
     Dates: start: 20230131, end: 20230131
  2. CARBOPLATIN [Suspect]
     Active Substance: CARBOPLATIN
     Dosage: 189 MG, (1 TOTAL)
     Route: 042
     Dates: start: 20230207, end: 20230207
  3. CARBOPLATIN [Suspect]
     Active Substance: CARBOPLATIN
     Dosage: 212.5 MG, (1 TOTAL)
     Route: 042
     Dates: start: 20230214, end: 20230214
  4. CARBOPLATIN [Suspect]
     Active Substance: CARBOPLATIN
     Dosage: 212 MG, (1 TOTAL)
     Route: 042
     Dates: start: 20230221, end: 20230221
  5. CARBOPLATIN [Suspect]
     Active Substance: CARBOPLATIN
     Dosage: 196.5 MG, (1 TOTAL)
     Route: 042
     Dates: start: 20230228, end: 20230228
  6. CARBOPLATIN [Suspect]
     Active Substance: CARBOPLATIN
     Dosage: 196.5 MG, (1 TOTAL)
     Route: 042
     Dates: start: 20230307, end: 20230307
  7. CARBOPLATIN [Suspect]
     Active Substance: CARBOPLATIN
     Dosage: 205 MG, (1 TOTAL)
     Route: 042
     Dates: start: 20230314, end: 20230314
  8. PACLITAXEL [Suspect]
     Active Substance: PACLITAXEL
     Indication: Triple negative breast cancer
     Dosage: 134.5 MG, (TOTAL)
     Route: 042
     Dates: start: 20230131, end: 20230131
  9. PACLITAXEL [Suspect]
     Active Substance: PACLITAXEL
     Dosage: 134.5 MG, (1 TOTAL)
     Route: 042
     Dates: start: 20230207, end: 20230207
  10. PACLITAXEL [Suspect]
     Active Substance: PACLITAXEL
     Dosage: 134.5 MG, (1 TOTAL)
     Route: 042
     Dates: start: 20230214, end: 20230214
  11. PACLITAXEL [Suspect]
     Active Substance: PACLITAXEL
     Dosage: 133 MG, (1 TOTAL)
     Route: 042
     Dates: start: 20230221, end: 20230221
  12. PACLITAXEL [Suspect]
     Active Substance: PACLITAXEL
     Dosage: 133 MG, (1 TOTAL)
     Route: 042
     Dates: start: 20230228, end: 20230228
  13. PACLITAXEL [Suspect]
     Active Substance: PACLITAXEL
     Dosage: 133 MG, (1 TOTAL)
     Route: 042
     Dates: start: 20230307, end: 20230307
  14. PACLITAXEL [Suspect]
     Active Substance: PACLITAXEL
     Dosage: 133 MG, (1 TOTAL)
     Route: 042
     Dates: start: 20230314, end: 20230314
  15. KEYTRUDA [Suspect]
     Active Substance: PEMBROLIZUMAB
     Indication: Triple negative breast cancer
     Dosage: 200 MG, (1 TOTAL)
     Route: 042
     Dates: start: 20230131, end: 20230131
  16. KEYTRUDA [Suspect]
     Active Substance: PEMBROLIZUMAB
     Dosage: 200 MG, (1 TOTAL)
     Route: 042
     Dates: start: 20230221, end: 20230221
  17. KEYTRUDA [Suspect]
     Active Substance: PEMBROLIZUMAB
     Dosage: 200 MG, (1 TOTAL)
     Route: 042
     Dates: start: 20230314, end: 20230314

REACTIONS (1)
  - Haemorrhage [Recovered/Resolved]

NARRATIVE: CASE EVENT DATE: 20230303
